FAERS Safety Report 5818079-9 (Version None)
Quarter: 2008Q3

REPORT INFORMATION
  Report Type: 
  Country: None (occurrence: None)
  Receive Date: 20080722
  Receipt Date: 20080716
  Transmission Date: 20090109
  Serious: Yes (Hospitalization, Other)
  Sender: FDA-Public Use
  Company Number: FR-PFIZER INC-2008059383

PATIENT
  Sex: Male
  Weight: 2.6 kg

DRUGS (4)
  1. XANAX [Suspect]
     Indication: ANXIETY
  2. SUBUTEX [Suspect]
  3. OXAZEPAM [Suspect]
     Indication: ANXIETY
  4. CLAMOXYL [Concomitant]
     Indication: URINARY TRACT INFECTION

REACTIONS (2)
  - DRUG EXPOSURE DURING PREGNANCY [None]
  - WITHDRAWAL SYNDROME [None]
